FAERS Safety Report 10775726 (Version 1)
Quarter: 2015Q1

REPORT INFORMATION
  Report Type: Spontaneous
  Country: BR (occurrence: None)
  Receive Date: 20150205
  Receipt Date: 20150205
  Transmission Date: 20150721
  Serious: Yes (Other)
  Sender: FDA-Public Use
  Company Number: 2014SA056890

PATIENT
  Sex: Female
  Weight: 62 kg

DRUGS (1)
  1. CLEXANE (ENOXAPARIN SODIUM) / UNKNOWN/UNKNOWN [Suspect]
     Active Substance: ENOXAPARIN SODIUM
     Indication: HYPERCOAGULATION
     Dosage: 1 DOSAGE FORM, DAILY
     Dates: start: 20140416, end: 201501

REACTIONS (4)
  - Pain in extremity [None]
  - Back pain [None]
  - Caesarean section [None]
  - Exposure during pregnancy [None]

NARRATIVE: CASE EVENT DATE: 20141125
